APPROVED DRUG PRODUCT: PLENAXIS
Active Ingredient: ABARELIX
Strength: 100MG/VIAL
Dosage Form/Route: POWDER;INTRAMUSCULAR
Application: N021320 | Product #001
Applicant: SPECIALITY EUROPEAN PHARMA LTD
Approved: Nov 25, 2003 | RLD: No | RS: No | Type: DISCN